FAERS Safety Report 9301225 (Version 1)
Quarter: 2013Q2

REPORT INFORMATION
  Report Type: Spontaneous
  Country: DE (occurrence: DE)
  Receive Date: 20130521
  Receipt Date: 20130521
  Transmission Date: 20140414
  Serious: Yes (Other)
  Sender: FDA-Public Use
  Company Number: DE-B.I. PHARMACEUTICALS,INC./RIDGEFIELD-2013-BI-12958GD

PATIENT
  Age: 63 Year
  Sex: Female

DRUGS (12)
  1. PRAMIPEXOLE [Suspect]
     Indication: RESTLESS LEGS SYNDROME
     Dosage: 0.36 MG
  2. PRAMIPEXOLE [Suspect]
     Dosage: INCREASING DOSES
  3. LEVODOPA/BENSERAZIDE [Suspect]
     Indication: RESTLESS LEGS SYNDROME
     Dosage: LEVODOPA/BENSERAZIDE 100 MG/25 MG
  4. AMITRIPTYLINE [Suspect]
     Indication: RESTLESS LEGS SYNDROME
  5. FENTANYL [Suspect]
     Indication: RESTLESS LEGS SYNDROME
     Dosage: 50 MCG HOURLY
     Route: 062
  6. LEVODOPA [Suspect]
     Indication: RESTLESS LEGS SYNDROME
  7. ROPINIROLE [Suspect]
     Indication: RESTLESS LEGS SYNDROME
  8. CABERGOLINE [Suspect]
     Indication: RESTLESS LEGS SYNDROME
  9. CLONAZEPAM [Suspect]
     Indication: RESTLESS LEGS SYNDROME
     Dosage: 1 MG
  10. BISOPROLOL [Concomitant]
     Indication: HYPERTENSION
  11. LOSARTAN [Concomitant]
     Indication: HYPERTENSION
  12. HYDROCHLOROTHIAZIDE [Concomitant]
     Indication: HYPERTENSION

REACTIONS (1)
  - Restless legs syndrome [Unknown]
